FAERS Safety Report 6232854-0 (Version None)
Quarter: 2009Q2

REPORT INFORMATION
  Report Type: 
  Country: None (occurrence: None)
  Receive Date: 20090617
  Receipt Date: 20081031
  Transmission Date: 20091009
  Serious: No
  Sender: FDA-Public Use
  Company Number: US-ASTRAZENECA-2008UW24442

PATIENT
  Sex: Female

DRUGS (1)
  1. FASLODEX [Suspect]

REACTIONS (4)
  - BLOOD PRESSURE INCREASED [None]
  - EAR DISORDER [None]
  - EYE DISORDER [None]
  - HEADACHE [None]
